FAERS Safety Report 13065071 (Version 1)
Quarter: 2016Q4

REPORT INFORMATION
  Report Type: Spontaneous
  Country: IT (occurrence: IT)
  Receive Date: 20161227
  Receipt Date: 20161227
  Transmission Date: 20170207
  Serious: Yes (Other)
  Sender: FDA-Public Use
  Company Number: IT-JNJFOC-20161218208

PATIENT
  Age: 43 Year
  Sex: Male

DRUGS (2)
  1. SERENASE [Suspect]
     Active Substance: HALOPERIDOL
     Indication: SCHIZOPHRENIA
     Route: 048
     Dates: start: 20150611, end: 20150612
  2. TAVOR (LORAZEPAM) [Concomitant]
     Active Substance: LORAZEPAM
     Indication: PRODUCT USED FOR UNKNOWN INDICATION
     Route: 065

REACTIONS (1)
  - Macroglossia [Recovering/Resolving]

NARRATIVE: CASE EVENT DATE: 20150612
